FAERS Safety Report 5005704-8 (Version None)
Quarter: 2006Q2

REPORT INFORMATION
  Report Type: 
  Country: None (occurrence: None)
  Receive Date: 20060515
  Receipt Date: 20060502
  Transmission Date: 20061013
  Serious: Yes (Hospitalization)
  Sender: FDA-Public Use
  Company Number: 2006059082

PATIENT
  Age: 28 Year
  Sex: Female

DRUGS (3)
  1. SOLU-CORTEF [Suspect]
     Indication: ANAPHYLACTIC REACTION
     Dosage: (100 MG)
     Dates: start: 20060415, end: 20060415
  2. ADRENALINE (ADRENALINE) [Concomitant]
  3. ZYRTEC [Concomitant]

REACTIONS (1)
  - DYSTONIA [None]
